FAERS Safety Report 6966159-7 (Version None)
Quarter: 2010Q3

REPORT INFORMATION
  Report Type: 
  Country: None (occurrence: None)
  Receive Date: 20100903
  Receipt Date: 20100825
  Transmission Date: 20110219
  Serious: Yes (Hospitalization)
  Sender: FDA-Public Use
  Company Number: GXKR2010ES09611

PATIENT
  Age: 37 Year
  Sex: Male

DRUGS (1)
  1. GABAPENTIN [Suspect]
     Dosage: 27 G/DAY
     Route: 065

REACTIONS (3)
  - DRUG DEPENDENCE [None]
  - SEDATION [None]
  - SLUGGISHNESS [None]
